FAERS Safety Report 23868855 (Version 2)
Quarter: 2024Q2

REPORT INFORMATION
  Report Type: Spontaneous
  Country: US (occurrence: US)
  Receive Date: 20240517
  Receipt Date: 20240524
  Transmission Date: 20240715
  Serious: Yes (Other)
  Sender: FDA-Public Use
  Company Number: US-Stemline Therapeutics, Inc.-2024ST002257

PATIENT
  Age: 54 Year
  Sex: Female

DRUGS (1)
  1. ORSERDU [Suspect]
     Active Substance: ELACESTRANT
     Indication: Product used for unknown indication
     Route: 048
     Dates: start: 20230922

REACTIONS (5)
  - Weight decreased [Not Recovered/Not Resolved]
  - Malaise [Unknown]
  - Spinal disorder [Unknown]
  - Nausea [Unknown]
  - Vomiting [Not Recovered/Not Resolved]
